FAERS Safety Report 9846346 (Version 1)
Quarter: 2013Q4

REPORT INFORMATION
  Report Type: Spontaneous
  Country: US (occurrence: None)
  Receive Date: 20131224
  Receipt Date: 20131224
  Transmission Date: 20140711
  Serious: Yes (Other)
  Sender: FDA-Public Use
  Company Number: PHEH2013US022793

PATIENT
  Sex: Female

DRUGS (1)
  1. GILENYA(FINGOLIMOD) CAPSULE 0.5 MG [Suspect]
     Indication: RELAPSING-REMITTING MULTIPLE SCLEROSIS
     Route: 048
     Dates: start: 20131029, end: 20131029

REACTIONS (1)
  - Atrioventricular block first degree [None]
